FAERS Safety Report 17015127 (Version 1)
Quarter: 2019Q4

REPORT INFORMATION
  Report Type: Spontaneous
  Country: US (occurrence: US)
  Receive Date: 20191111
  Receipt Date: 20191111
  Transmission Date: 20200122
  Serious: Yes (Other)
  Sender: FDA-Public Use
  Company Number: NVSC2019US023692

PATIENT
  Age: 84 Year
  Sex: Male

DRUGS (3)
  1. GABAPENTIN. [Concomitant]
     Active Substance: GABAPENTIN
     Indication: NEURALGIA
     Dosage: 300 MG, TID
     Route: 065
  2. ROPINIROLE. [Suspect]
     Active Substance: ROPINIROLE
     Dosage: 3 MG, QD
     Route: 065
  3. ROPINIROLE. [Suspect]
     Active Substance: ROPINIROLE
     Indication: RESTLESS LEGS SYNDROME
     Dosage: 1 MG, QD
     Route: 065

REACTIONS (5)
  - Mania [Recovering/Resolving]
  - Psychotic disorder [Recovering/Resolving]
  - Bipolar disorder [Recovering/Resolving]
  - Agitation [Recovering/Resolving]
  - Irritability [Recovered/Resolved]
